FAERS Safety Report 5124750-7 (Version None)
Quarter: 2006Q4

REPORT INFORMATION
  Report Type: 
  Country: None (occurrence: None)
  Receive Date: 20061011
  Receipt Date: 20060907
  Transmission Date: 20070319
  Serious: Yes (Other)
  Sender: FDA-Public Use
  Company Number: PHHO2006JP15411

PATIENT
  Age: 660 Year
  Sex: Female
  Weight: 59 kg

DRUGS (9)
  1. CLOZAPINE [Suspect]
     Indication: SCHIZOPHRENIA
     Dosage: 100 MG, UNK
     Route: 048
     Dates: start: 20060809, end: 20060824
  2. CLOZAPINE [Suspect]
     Dosage: 150 MG, UNK
     Route: 048
     Dates: start: 20060825, end: 20060826
  3. CLOZAPINE [Suspect]
     Dosage: 175 MG, UNK
     Route: 048
     Dates: start: 20060827, end: 20060829
  4. CLOZAPINE [Suspect]
     Dosage: 200 MG, UNK
     Route: 048
     Dates: start: 20060830, end: 20060902
  5. CLOZAPINE [Suspect]
     Dosage: 100 MG, UNK
     Route: 048
     Dates: start: 20060903, end: 20060903
  6. CLOZAPINE [Suspect]
     Dosage: 50 MG, UNK
     Route: 048
     Dates: start: 20060904, end: 20060904
  7. CLOZAPINE [Suspect]
     Dosage: 25 MG, UNK
     Route: 048
     Dates: start: 20060905, end: 20060905
  8. TOBRAMYCIN (NGX) [Suspect]
     Indication: ENTEROCOLITIS
     Dates: start: 20060905, end: 20060911
  9. ANTIBIOTICS [Suspect]

REACTIONS (14)
  - BLOOD CREATININE INCREASED [None]
  - CATHETER SITE INFECTION [None]
  - DEHYDRATION [None]
  - DIARRHOEA [None]
  - DRUG HYPERSENSITIVITY [None]
  - ENTEROCOLITIS [None]
  - INFLAMMATION [None]
  - LIVER DISORDER [None]
  - NUTRITIONAL CONDITION ABNORMAL [None]
  - ORAL INTAKE REDUCED [None]
  - PLATELET COUNT DECREASED [None]
  - PYREXIA [None]
  - RENAL IMPAIRMENT [None]
  - WEIGHT DECREASED [None]
